FAERS Safety Report 15608704 (Version 1)
Quarter: 2018Q4

REPORT INFORMATION
  Report Type: Spontaneous
  Country: US (occurrence: US)
  Receive Date: 20181112
  Receipt Date: 20181112
  Transmission Date: 20190205
  Serious: No
  Sender: FDA-Public Use
  Company Number: US-SA-2018SA306686

PATIENT
  Sex: Female

DRUGS (4)
  1. FLUTICASONE. [Concomitant]
     Active Substance: FLUTICASONE
  2. PRALUENT [Suspect]
     Active Substance: ALIROCUMAB
     Indication: TYPE IIA HYPERLIPIDAEMIA
     Dosage: 75 MG, QOW
     Route: 058
  3. LISINOPRIL. [Concomitant]
     Active Substance: LISINOPRIL
  4. AFLURIA QUAD [Concomitant]

REACTIONS (8)
  - Injection site reaction [Unknown]
  - Oropharyngeal pain [Unknown]
  - Injection site warmth [Unknown]
  - Condition aggravated [Unknown]
  - Diarrhoea [Unknown]
  - Injection site pruritus [Unknown]
  - Thirst [Unknown]
  - Product use issue [Unknown]
